FAERS Safety Report 6171944-8 (Version None)
Quarter: 2009Q2

REPORT INFORMATION
  Report Type: 
  Country: None (occurrence: None)
  Receive Date: 20090424
  Receipt Date: 20090203
  Transmission Date: 20091009
  Serious: No
  Sender: FDA-Public Use
  Company Number: ALL1-2009-00279

PATIENT
  Age: 9 Year
  Sex: Male
  Weight: 23.6 kg

DRUGS (1)
  1. VYVANSE [Suspect]
     Indication: ATTENTION DEFICIT/HYPERACTIVITY DISORDER
     Dosage: 20 MG,  1X/DAY:QD, ORAL; 30 MG, 1X/DAY: QD, ORAL;  40 MG, 1X/DAY:GD, ORAL
     Route: 048
     Dates: start: 20081201, end: 20081201

REACTIONS (3)
  - AGGRESSION [None]
  - CRYING [None]
  - PSYCHOMOTOR HYPERACTIVITY [None]
